FAERS Safety Report 14372505 (Version 4)
Quarter: 2018Q2

REPORT INFORMATION
  Report Type: Spontaneous
  Country: US (occurrence: US)
  Receive Date: 20180110
  Receipt Date: 20180517
  Transmission Date: 20180711
  Serious: No
  Sender: FDA-Public Use
  Company Number: US-ACTELION-A-US2018-165546

PATIENT
  Age: 68 Year
  Sex: Female
  Weight: 84.35 kg

DRUGS (16)
  1. UPTRAVI [Suspect]
     Active Substance: SELEXIPAG
     Dosage: 200 MCG, BID
     Route: 048
  2. WARFARIN [Concomitant]
     Active Substance: WARFARIN
  3. SILDENAFIL. [Concomitant]
     Active Substance: SILDENAFIL
  4. FINASTERIDE. [Concomitant]
     Active Substance: FINASTERIDE
  5. UPTRAVI [Suspect]
     Active Substance: SELEXIPAG
     Indication: PULMONARY ARTERIAL HYPERTENSION
     Dosage: 1600 MCG, BID
     Route: 048
     Dates: start: 20170125
  6. AMBRISENTAN [Suspect]
     Active Substance: AMBRISENTAN
     Dosage: 5 MG, QD
     Route: 048
     Dates: start: 20170101
  7. METOPROLOL. [Concomitant]
     Active Substance: METOPROLOL
  8. FLUTICASONE. [Concomitant]
     Active Substance: FLUTICASONE
  9. OMEPRAZOLE. [Concomitant]
     Active Substance: OMEPRAZOLE
  10. ATORVASTATIN [Concomitant]
     Active Substance: ATORVASTATIN
  11. UPTRAVI [Suspect]
     Active Substance: SELEXIPAG
     Dosage: 400 MCG, BID
     Route: 048
  12. ADEMPAS [Suspect]
     Active Substance: RIOCIGUAT
     Indication: PRODUCT USED FOR UNKNOWN INDICATION
     Dosage: 2.5 MG, TID
     Route: 065
  13. FUROSEMIDE. [Concomitant]
     Active Substance: FUROSEMIDE
  14. AMBRISENTAN [Suspect]
     Active Substance: AMBRISENTAN
     Indication: PULMONARY ARTERIAL HYPERTENSION
     Dosage: 10 MG, QD
     Route: 048
     Dates: start: 20160923
  15. METFORMIN [Concomitant]
     Active Substance: METFORMIN HYDROCHLORIDE
  16. POTASSIUM CHLORIDE. [Concomitant]
     Active Substance: POTASSIUM CHLORIDE

REACTIONS (17)
  - Cough [Recovered/Resolved]
  - Ear swelling [Not Recovered/Not Resolved]
  - Eye discharge [Recovered/Resolved]
  - Pulmonary congestion [Recovering/Resolving]
  - Flushing [Not Recovered/Not Resolved]
  - Rhinitis [Not Recovered/Not Resolved]
  - Ear discomfort [Recovering/Resolving]
  - Dyspnoea [Unknown]
  - Abdominal pain [Not Recovered/Not Resolved]
  - Swelling face [Recovered/Resolved]
  - Myalgia [Unknown]
  - Pain in extremity [Unknown]
  - Unevaluable event [Unknown]
  - Chills [Not Recovered/Not Resolved]
  - Erythema [Not Recovered/Not Resolved]
  - Sneezing [Not Recovered/Not Resolved]
  - Pulmonary arterial pressure increased [Not Recovered/Not Resolved]

NARRATIVE: CASE EVENT DATE: 20171201
